FAERS Safety Report 4387867-0 (Version None)
Quarter: 2004Q2

REPORT INFORMATION
  Report Type: 
  Country: None (occurrence: None)
  Receive Date: 20040630
  Receipt Date: 20040624
  Transmission Date: 20050107
  Serious: Yes (Death, Hospitalization)
  Sender: FDA-Public Use
  Company Number: PHBS2004US08448

PATIENT
  Age: 14 Month
  Sex: Male
  Weight: 6 kg

DRUGS (3)
  1. PAMIDRONATE DISODIUM [Suspect]
     Indication: OSTEOGENESIS IMPERFECTA
     Dosage: 0.5 MG/KG/D
  2. PAMIDRONATE DISODIUM [Suspect]
     Dosage: 1 MG/KG
  3. PAMIDRONATE DISODIUM [Suspect]
     Dosage: UNK, UNK

REACTIONS (7)
  - CONDITION AGGRAVATED [None]
  - DEATH [None]
  - HEART RATE INCREASED [None]
  - OXYGEN SATURATION DECREASED [None]
  - PYREXIA [None]
  - RESPIRATORY DISTRESS [None]
  - RESPIRATORY RATE INCREASED [None]
